FAERS Safety Report 15094349 (Version 1)
Quarter: 2018Q2

REPORT INFORMATION
  Report Type: Report from Study
  Country: CO (occurrence: CO)
  Receive Date: 20180630
  Receipt Date: 20180630
  Transmission Date: 20180711
  Serious: Yes (Hospitalization, Other)
  Sender: FDA-Public Use
  Company Number: CO-UCBSA-2018028433

PATIENT
  Age: 20 Year
  Sex: Female
  Weight: 57 kg

DRUGS (6)
  1. LACOSAMIDE. [Suspect]
     Active Substance: LACOSAMIDE
     Indication: EPILEPSY
     Dosage: 200 MG, 2X/DAY (BID)
     Route: 048
     Dates: start: 20160225, end: 20180515
  2. CLONIDINA [Concomitant]
     Indication: HYPERTENSION
     Dosage: 150 MG, 3X/DAY (TID)
     Route: 048
  3. LEVETIRACETAM. [Concomitant]
     Active Substance: LEVETIRACETAM
     Indication: EPILEPSY
     Dosage: 500 MG, 2X/DAY (BID)
     Route: 048
  4. MYCOPHENOLIC ACID. [Concomitant]
     Active Substance: MYCOPHENOLIC ACID
     Indication: TRANSPLANT
     Dosage: 360 MG, 3X/DAY (TID)
     Route: 048
  5. PREDNISOLONA [Concomitant]
     Active Substance: PREDNISOLONE
     Indication: TRANSPLANT
     Dosage: 5 MG, 2X/DAY (BID)
     Route: 048
  6. METOPROLOL. [Concomitant]
     Active Substance: METOPROLOL
     Indication: HYPERTENSION
     Dosage: 50 MG, 3X/DAY (TID)
     Route: 048

REACTIONS (2)
  - Drug dose omission [Unknown]
  - Seizure [Recovered/Resolved]

NARRATIVE: CASE EVENT DATE: 20180515
